FAERS Safety Report 8881136 (Version 2)
Quarter: 2012Q4

REPORT INFORMATION
  Report Type: 
  Country: US (occurrence: US)
  Receive Date: 20121101
  Receipt Date: 20121126
  Transmission Date: 20130627
  Serious: Yes (Hospitalization)
  Sender: FDA-Public Use
  Company Number: US-ASTRAZENECA-2012SE81797

PATIENT
  Age: 55 Year
  Sex: Female
  Weight: 64.9 kg

DRUGS (11)
  1. NEXIUM [Suspect]
     Route: 048
  2. CLONAZEPAM [Suspect]
     Route: 048
  3. DULOXETINE [Suspect]
     Route: 065
  4. SEROQUEL XR [Suspect]
     Indication: PSYCHOTIC DISORDER
     Route: 048
  5. SEROQUEL XR [Suspect]
     Indication: DEPRESSION
     Route: 048
  6. SEROQUEL XR [Suspect]
     Indication: PSYCHOTIC DISORDER
     Route: 048
  7. SEROQUEL XR [Suspect]
     Indication: DEPRESSION
     Route: 048
  8. DEXILANT [Suspect]
     Route: 065
  9. ZOFRAN [Concomitant]
  10. PROTONIX [Concomitant]
     Route: 042
  11. ZANTAC [Concomitant]

REACTIONS (9)
  - Chest pain [Unknown]
  - Chest pain [Unknown]
  - Vomiting [Unknown]
  - Nausea [Unknown]
  - Abdominal pain upper [Unknown]
  - Abdominal pain [Unknown]
  - Gastrooesophageal reflux disease [Recovered/Resolved]
  - Aphagia [Unknown]
  - Depression [Recovered/Resolved]
